FAERS Safety Report 5755081-X (Version None)
Quarter: 2008Q2

REPORT INFORMATION
  Report Type: 
  Country: None (occurrence: None)
  Receive Date: 20080528
  Receipt Date: 20080528
  Transmission Date: 20081010
  Serious: Yes (Other)
  Sender: FDA-Public Use
  Company Number: None

PATIENT
  Age: 35 Year
  Sex: Female
  Weight: 58.9676 kg

DRUGS (1)
  1. CREST PRO-HEALTH RINSE P+G [Suspect]
     Indication: DENTAL DISORDER PROPHYLAXIS
     Dosage: PRE-MEASURED DOSE -LID- 2X DAY PO
     Route: 048
     Dates: start: 20071201, end: 20080501

REACTIONS (3)
  - AGEUSIA [None]
  - PHARMACEUTICAL PRODUCT COMPLAINT [None]
  - STOMATITIS [None]
